FAERS Safety Report 7302860-3 (Version None)
Quarter: 2011Q1

REPORT INFORMATION
  Report Type: 
  Country: None (occurrence: None)
  Receive Date: 20110218
  Receipt Date: 20110216
  Transmission Date: 20110831
  Serious: Yes (Other)
  Sender: FDA-Public Use
  Company Number: DE-ABBOTT-11P-062-0705709-00

PATIENT
  Age: 60 Year
  Sex: Female

DRUGS (2)
  1. ERGENYL [Suspect]
     Indication: MIGRAINE
     Route: 048
     Dates: start: 20100921, end: 20101217
  2. LEVOTHYROXINE SODIUM [Concomitant]
     Indication: PRODUCT USED FOR UNKNOWN INDICATION

REACTIONS (2)
  - COAGULOPATHY [None]
  - RETINAL HAEMORRHAGE [None]
